FAERS Safety Report 26096212 (Version 1)
Quarter: 2025Q4

REPORT INFORMATION
  Report Type: Spontaneous
  Country: EU (occurrence: EU)
  Receive Date: 20251127
  Receipt Date: 20251127
  Transmission Date: 20260118
  Serious: Yes (Other)
  Sender: SANOFI AVENTIS
  Company Number: EU-SA-2025SA351173

PATIENT

DRUGS (1)
  1. BEYFORTUS [Suspect]
     Active Substance: NIRSEVIMAB-ALIP
     Dosage: 100 MG, 1X
     Dates: start: 20250909, end: 20250909

REACTIONS (1)
  - Respiratory syncytial virus bronchiolitis [Not Recovered/Not Resolved]

NARRATIVE: CASE EVENT DATE: 20250101
